FAERS Safety Report 8591423-8 (Version None)
Quarter: 2012Q3

REPORT INFORMATION
  Report Type: 
  Country: None (occurrence: None)
  Receive Date: 20120814
  Receipt Date: 20120802
  Transmission Date: 20120928
  Serious: Yes (Hospitalization)
  Sender: FDA-Public Use
  Company Number: US-BAYER-2012-039152

PATIENT
  Age: 37 Year
  Sex: Female
  Weight: 90.703 kg

DRUGS (18)
  1. YAZ [Suspect]
     Indication: CONTRACEPTION
     Dosage: UNK
     Dates: start: 20040901, end: 20090509
  2. NEURONTIN [Concomitant]
     Indication: POST-TRAUMATIC PAIN
     Dosage: 600 MG, HS
     Dates: start: 20080301, end: 20090509
  3. STOOL SOFTENER [Concomitant]
  4. YAZ [Suspect]
     Indication: PREMENSTRUAL SYNDROME
  5. AUGMENTIN '500' [Concomitant]
     Indication: SINUSITIS
     Dosage: 875 MG-125 MG TWICE A DAY
     Route: 048
     Dates: start: 20090502, end: 20090509
  6. ADVIL [Concomitant]
     Dosage: UNK UNK, PRN
     Route: 048
  7. PRISTIQ [Concomitant]
     Indication: DEPRESSION
  8. B-COMPLEX [VITAMIN B NOS] [Concomitant]
     Dosage: UNK UNK, OM
     Route: 048
  9. LAXATIVES [Concomitant]
     Indication: CONSTIPATION
     Dosage: 10 MG, DAILY PRN
     Route: 048
     Dates: start: 20090507
  10. XANAX [Concomitant]
     Indication: DEPRESSION
  11. YASMIN [Suspect]
     Indication: PREMENSTRUAL SYNDROME
  12. YASMIN [Suspect]
     Indication: CONTRACEPTION
     Dosage: UNK
     Dates: start: 20040901, end: 20090509
  13. CYCLOBENZAPRINE [Concomitant]
     Indication: PROCEDURAL PAIN
     Dosage: 15 MG, UNK
     Route: 048
     Dates: start: 20090407
  14. BALACET [Concomitant]
     Indication: PAIN
     Dosage: UNK UNK, PRN
     Route: 048
     Dates: start: 20080401, end: 20090401
  15. FLONASE [Concomitant]
     Indication: MULTIPLE ALLERGIES
     Dosage: 0.05 MG/INH, 2 SQ EACH NOSTRIL DAILY
     Route: 045
     Dates: start: 20080301, end: 20090301
  16. SYNTHROID [Concomitant]
     Indication: HYPERTHYROIDISM
     Dosage: 137 ?G, UNK
     Route: 048
     Dates: start: 20010101
  17. DILAUDID [Concomitant]
     Indication: PROCEDURAL PAIN
     Dosage: 2 MG, UNK
     Route: 048
     Dates: start: 20090407, end: 20090601
  18. ACETAMINOPHEN W/ PROPOXYPHENE HCL [Concomitant]
     Route: 048

REACTIONS (7)
  - PAIN [None]
  - MENTAL DISORDER [None]
  - INJURY [None]
  - ANHEDONIA [None]
  - PULMONARY EMBOLISM [None]
  - DEEP VEIN THROMBOSIS [None]
  - ANXIETY [None]
